FAERS Safety Report 23529975 (Version 5)
Quarter: 2024Q2

REPORT INFORMATION
  Report Type: Spontaneous
  Country: DE (occurrence: DE)
  Receive Date: 20240216
  Receipt Date: 20240501
  Transmission Date: 20240715
  Serious: Yes (Hospitalization, Other)
  Sender: FDA-Public Use
  Company Number: DE-GLAXOSMITHKLINE-DE2024EME018687

PATIENT

DRUGS (11)
  1. NIRAPARIB [Suspect]
     Active Substance: NIRAPARIB
     Indication: Ovarian cancer
     Dosage: 300 MG
     Dates: start: 20230911, end: 20231231
  2. NIRAPARIB [Suspect]
     Active Substance: NIRAPARIB
     Dosage: 200 MG, QD
     Dates: start: 20240123, end: 20240206
  3. NIRAPARIB [Suspect]
     Active Substance: NIRAPARIB
     Dosage: 100 MG, QD
     Dates: start: 20240226
  4. APIXABAN [Concomitant]
     Active Substance: APIXABAN
     Indication: Pulmonary embolism
     Dosage: UNK
     Dates: start: 20220601, end: 20230428
  5. PREDNISOLONE [Concomitant]
     Active Substance: PREDNISOLONE
     Indication: Rheumatoid arthritis
     Dosage: 5 MG, QD (REDUCED ON 12/01 FROM 7.5 MG))
     Dates: start: 20230216, end: 202402
  6. PREDNISOLONE [Concomitant]
     Active Substance: PREDNISOLONE
     Indication: Pancytopenia
  7. NEUPOGEN [Concomitant]
     Active Substance: FILGRASTIM
     Indication: Product used for unknown indication
     Dosage: 48 IE, QD
     Route: 058
     Dates: start: 20240206, end: 20240207
  8. PIPERACILLIN SODIUM\TAZOBACTAM SODIUM [Concomitant]
     Active Substance: PIPERACILLIN SODIUM\TAZOBACTAM SODIUM
     Indication: Product used for unknown indication
     Dosage: UNK
     Dates: start: 20240207, end: 20240213
  9. VORICONAZOLE [Concomitant]
     Active Substance: VORICONAZOLE
     Indication: Mucosal inflammation
     Dosage: 200 MG
     Dates: start: 20240207, end: 20240216
  10. MEROPENEM [Concomitant]
     Active Substance: MEROPENEM
     Indication: Product used for unknown indication
     Dosage: UNK, ADMINISTRATION FOR A TOTAL OF 6 D
     Dates: start: 20240214, end: 20240219
  11. LEVOTHYROXINE [Concomitant]
     Active Substance: LEVOTHYROXINE\LEVOTHYROXINE SODIUM
     Indication: Thyroid disorder
     Dosage: 150 UG, QD

REACTIONS (46)
  - Dyspnoea [Recovered/Resolved]
  - Pyrexia [Recovered/Resolved]
  - Anaemia [Recovering/Resolving]
  - Thrombocytopenia [Recovered/Resolved]
  - Granulocytopenia [Recovered/Resolved]
  - Pancytopenia [Recovered/Resolved]
  - Leukopenia [Unknown]
  - Haematemesis [Unknown]
  - Upper gastrointestinal haemorrhage [Unknown]
  - Internal haemorrhage [Unknown]
  - Respiratory failure [Recovering/Resolving]
  - Hypokalaemia [Unknown]
  - Melaena [Unknown]
  - Pneumonia [Unknown]
  - Osteoporotic fracture [Unknown]
  - Neutropenic sepsis [Unknown]
  - COVID-19 [Unknown]
  - Candida infection [Unknown]
  - Mucosal inflammation [Unknown]
  - Hiatus hernia [Unknown]
  - Pain [Unknown]
  - Salivary hypersecretion [Unknown]
  - Hypophagia [Recovering/Resolving]
  - Herpes virus infection [Unknown]
  - SARS-CoV-2 test positive [Unknown]
  - Stress [Unknown]
  - Dysphagia [Unknown]
  - Oral pain [Unknown]
  - Retching [Unknown]
  - Oral candidiasis [Unknown]
  - Faeces discoloured [Unknown]
  - Fatigue [Unknown]
  - Decreased appetite [Unknown]
  - Night sweats [Unknown]
  - Asthenia [Unknown]
  - Discomfort [Unknown]
  - Radius fracture [Unknown]
  - General physical health deterioration [Unknown]
  - Mucosal dryness [Unknown]
  - Skin turgor decreased [Unknown]
  - Coating in mouth [Unknown]
  - Rales [Unknown]
  - Oral disorder [Not Recovered/Not Resolved]
  - Motor dysfunction [Recovering/Resolving]
  - Hypervolaemia [Unknown]
  - Tracheobronchitis [Unknown]

NARRATIVE: CASE EVENT DATE: 20231201
